FAERS Safety Report 10929233 (Version 2)
Quarter: 2015Q2

REPORT INFORMATION
  Report Type: Spontaneous
  Country: US (occurrence: US)
  Receive Date: 20150319
  Receipt Date: 20150524
  Transmission Date: 20150821
  Serious: No
  Sender: FDA-Public Use
  Company Number: US-JNJFOC-20140211865

PATIENT
  Sex: Female
  Weight: 61.24 kg

DRUGS (10)
  1. ARICEPT [Concomitant]
     Active Substance: DONEPEZIL HYDROCHLORIDE
     Indication: COGNITIVE DISORDER
     Route: 048
  2. WATSON METHYLPHENIDATE [Suspect]
     Active Substance: METHYLPHENIDATE
     Indication: FEELING ABNORMAL
     Route: 048
     Dates: start: 2013, end: 2013
  3. WATSON METHYLPHENIDATE [Suspect]
     Active Substance: METHYLPHENIDATE
     Indication: COGNITIVE DISORDER
     Route: 048
     Dates: start: 2013, end: 2013
  4. LEXAPRO [Concomitant]
     Active Substance: ESCITALOPRAM OXALATE
     Route: 048
  5. ARICEPT [Concomitant]
     Active Substance: DONEPEZIL HYDROCHLORIDE
     Indication: FEELING ABNORMAL
     Route: 048
  6. WATSON METHYLPHENIDATE [Suspect]
     Active Substance: METHYLPHENIDATE
     Indication: CRANIOCEREBRAL INJURY
     Route: 048
     Dates: start: 2013, end: 2013
  7. PRAVACHOL [Concomitant]
     Active Substance: PRAVASTATIN SODIUM
     Indication: BLOOD CHOLESTEROL
     Route: 048
  8. WATSON METHYLPHENIDATE [Suspect]
     Active Substance: METHYLPHENIDATE
     Indication: COMPLEX REGIONAL PAIN SYNDROME
     Route: 048
     Dates: start: 2013, end: 2013
  9. FISH OIL [Concomitant]
     Active Substance: FISH OIL
     Route: 065
  10. MOBIC [Concomitant]
     Active Substance: MELOXICAM
     Route: 065

REACTIONS (2)
  - Product use issue [Unknown]
  - Therapeutic response unexpected [Unknown]

NARRATIVE: CASE EVENT DATE: 2013
